FAERS Safety Report 12531925 (Version 1)
Quarter: 2016Q3

REPORT INFORMATION
  Report Type: Spontaneous
  Country: US (occurrence: US)
  Receive Date: 20160706
  Receipt Date: 20160706
  Transmission Date: 20161109
  Serious: Yes (Hospitalization)
  Sender: FDA-Public Use
  Company Number: US-PFIZER INC-2016325294

PATIENT
  Sex: Male

DRUGS (2)
  1. NEURONTIN [Suspect]
     Active Substance: GABAPENTIN
     Indication: DIABETIC NEUROPATHY
  2. NEURONTIN [Suspect]
     Active Substance: GABAPENTIN
     Indication: MUSCLE SPASMS
     Dosage: 600 MG, 3X/DAY

REACTIONS (7)
  - Toxicity to various agents [Unknown]
  - Product use issue [Unknown]
  - Speech disorder [Unknown]
  - Dysstasia [Unknown]
  - Abnormal behaviour [Unknown]
  - Pyrexia [Unknown]
  - Sepsis [Unknown]
